FAERS Safety Report 5393624-9 (Version None)
Quarter: 2007Q3

REPORT INFORMATION
  Report Type: 
  Country: None (occurrence: None)
  Receive Date: 20070723
  Receipt Date: 20061002
  Transmission Date: 20080115
  Serious: Yes (Other)
  Sender: FDA-Public Use
  Company Number: A0622146A

PATIENT
  Age: 69 Year
  Sex: Female

DRUGS (8)
  1. AVANDIA [Suspect]
     Dosage: 1MG PER DAY
     Route: 048
  2. GLYBURIDE [Concomitant]
  3. POTASSIUM CHLORIDE [Concomitant]
  4. LASIX [Concomitant]
  5. CALAN [Concomitant]
  6. DARVOCET [Concomitant]
  7. NAPROXEN [Concomitant]
  8. SYNTHROID [Concomitant]

REACTIONS (1)
  - MACULAR OEDEMA [None]
